FAERS Safety Report 25870812 (Version 2)
Quarter: 2025Q4

REPORT INFORMATION
  Report Type: Spontaneous
  Country: US (occurrence: US)
  Receive Date: 20251001
  Receipt Date: 20251016
  Transmission Date: 20260117
  Serious: Yes (Other)
  Sender: ABBVIE
  Company Number: US-ABBVIE-6482796

PATIENT
  Age: 68 Year
  Sex: Female

DRUGS (1)
  1. REFRESH TEARS [Suspect]
     Active Substance: CARBOXYMETHYLCELLULOSE SODIUM
     Indication: Dry eye
     Dosage: 1-2 DROPS FOR BOTH EYES
     Route: 047
     Dates: start: 202504, end: 202509

REACTIONS (4)
  - Blindness [Not Recovered/Not Resolved]
  - Eye pain [Recovering/Resolving]
  - Cataract [Not Recovered/Not Resolved]
  - Eye pain [Recovering/Resolving]

NARRATIVE: CASE EVENT DATE: 20250701
